FAERS Safety Report 18106699 (Version 1)
Quarter: 2020Q3

REPORT INFORMATION
  Report Type: Spontaneous
  Country: US (occurrence: US)
  Receive Date: 20200803
  Receipt Date: 20200803
  Transmission Date: 20201103
  Serious: No
  Sender: FDA-Public Use
  Company Number: None

PATIENT
  Age: 60 Year
  Sex: Female
  Weight: 96.75 kg

DRUGS (5)
  1. OPE ELITE BRANDS HAND SANITIZER [Suspect]
     Active Substance: ALCOHOL
     Indication: INFECTION PROPHYLAXIS
     Dosage: ?          QUANTITY:1 GALLON;OTHER FREQUENCY:N/A;OTHER ROUTE:INHALATION?
     Route: 055
     Dates: start: 20200605
  2. PEPCID [Concomitant]
     Active Substance: FAMOTIDINE
  3. VITAMIN D [Concomitant]
     Active Substance: VITAMIN D NOS
  4. LISINOPRIL. [Concomitant]
     Active Substance: LISINOPRIL
  5. MAGNESIUM [Concomitant]
     Active Substance: MAGNESIUM

REACTIONS (7)
  - Rash papular [None]
  - Headache [None]
  - Dizziness [None]
  - Skin burning sensation [None]
  - Ataxia [None]
  - Urticaria [None]
  - Chemical poisoning [None]

NARRATIVE: CASE EVENT DATE: 20200605
